FAERS Safety Report 24376684 (Version 1)
Quarter: 2024Q3

REPORT INFORMATION
  Report Type: Spontaneous
  Country: US (occurrence: None)
  Receive Date: 20240927
  Receipt Date: 20240927
  Transmission Date: 20241016
  Serious: No
  Sender: Public
  Company Number: None

PATIENT
  Age: 60 Year
  Sex: Male

DRUGS (2)
  1. XTANDI [Suspect]
     Active Substance: ENZALUTAMIDE
  2. ORGOVYX [Suspect]
     Active Substance: RELUGOLIX

REACTIONS (2)
  - Blood testosterone decreased [None]
  - Cognitive disorder [None]
